FAERS Safety Report 17163251 (Version 1)
Quarter: 2019Q4

REPORT INFORMATION
  Report Type: Spontaneous
  Country: NL (occurrence: NL)
  Receive Date: 20191217
  Receipt Date: 20191217
  Transmission Date: 20200122
  Serious: Yes (Other)
  Sender: FDA-Public Use
  Company Number: NL-ACCORD-165790

PATIENT
  Age: 74 Year
  Sex: Female
  Weight: 65 kg

DRUGS (11)
  1. FUROSEMIDE. [Suspect]
     Active Substance: FUROSEMIDE
     Indication: CARDIAC FAILURE
     Dosage: 1D1
     Dates: start: 20191005
  2. HYDROCHLOROTHIAZIDE. [Concomitant]
     Active Substance: HYDROCHLOROTHIAZIDE
     Dosage: 1 - 0 - 0 - 0  PIECES, STRENGTH:12.5 MG
  3. MACROGOL/MACROGOL STEARATE [Concomitant]
     Active Substance: POLYETHYLENE GLYCOLS
     Dosage: 1 - 0 - 0 - 0  PIECES
  4. COMBIVENT [Concomitant]
     Active Substance: ALBUTEROL SULFATE\IPRATROPIUM BROMIDE
     Dosage: 2.5 - 2.5 - 2.5 - 2.5  MILLILITER
  5. METOPROLOL. [Concomitant]
     Active Substance: METOPROLOL
     Dosage: 1 - 0 - 0 - 0  PIECES, STRENGTH:50 MG SUC TAB MGA
  6. TIMOPTOL XE [Concomitant]
     Active Substance: TIMOLOL MALEATE
     Dosage: 1 - 0 - 0 - 1  DROPS IN BOTH EYES, STRENGTH: 0.5% EYE DROP
  7. OMEPRAZOLE. [Concomitant]
     Active Substance: OMEPRAZOLE
     Dosage: 0 - 0 - 1 - 0  PIECES, STRENGTH: 20 MG, CAPSULE MSR
  8. FLIXOTIDE [Concomitant]
     Active Substance: FLUTICASONE PROPIONATE
     Dosage: 2 - 0 - 0 - 2  MILLILITER, STRENGTH: 500 0.25 MG ML NEB
  9. CALCI CHEW D3 [Concomitant]
     Active Substance: CALCIUM CARBONATE\CHOLECALCIFEROL
     Dosage: 18:00U 1ST, STOP 26-11-2019, STRENGTH: 500 MG / 800IE
  10. CLOBETASOL [Concomitant]
     Active Substance: CLOBETASOL
     Dosage: 1 - 0 - 0 - 1  GRAM EVERY OTHER DAY, STRENGTH: 0.5 MG / G CREAM
  11. PARACETAMOL [Concomitant]
     Active Substance: ACETAMINOPHEN
     Dosage: 8:00 AM 2ND - 2:00 PM 2ND - 9:00 PM 2ND, STRENGTH: 500 MG

REACTIONS (1)
  - Pemphigoid [Recovering/Resolving]

NARRATIVE: CASE EVENT DATE: 20191010
